FAERS Safety Report 12524066 (Version 1)
Quarter: 2016Q3

REPORT INFORMATION
  Report Type: Spontaneous
  Country: CA (occurrence: CA)
  Receive Date: 20160704
  Receipt Date: 20160704
  Transmission Date: 20161109
  Serious: Yes (Other)
  Sender: FDA-Public Use
  Company Number: CA-ASTRAZENECA-2016SE70369

PATIENT
  Age: 59 Year
  Sex: Male

DRUGS (11)
  1. SEROQUEL [Interacting]
     Active Substance: QUETIAPINE FUMARATE
     Dosage: 100.0MG UNKNOWN
     Route: 048
  2. EFFEXOR XR [Interacting]
     Active Substance: VENLAFAXINE HYDROCHLORIDE
     Dosage: 150.0MG UNKNOWN
     Route: 048
  3. SEROQUEL [Interacting]
     Active Substance: QUETIAPINE FUMARATE
     Dosage: 200.0MG UNKNOWN
     Route: 048
  4. ZOPICLONE [Interacting]
     Active Substance: ZOPICLONE
     Route: 048
  5. ATIVAN [Interacting]
     Active Substance: LORAZEPAM
     Dosage: 4.0MG UNKNOWN
     Route: 065
  6. NICOTINE. [Concomitant]
     Active Substance: NICOTINE
  7. SEROQUEL [Interacting]
     Active Substance: QUETIAPINE FUMARATE
     Dosage: 300.0MG UNKNOWN
     Route: 048
  8. KETOCONAZOLE. [Interacting]
     Active Substance: KETOCONAZOLE
     Dosage: 2.0% UNKNOWN
     Route: 065
  9. SEROQUEL [Suspect]
     Active Substance: QUETIAPINE FUMARATE
     Route: 048
  10. SEROQUEL [Interacting]
     Active Substance: QUETIAPINE FUMARATE
     Dosage: 75.0MG UNKNOWN
     Route: 048
  11. ATIVAN [Interacting]
     Active Substance: LORAZEPAM
     Dosage: 2.0MG UNKNOWN
     Route: 065

REACTIONS (7)
  - Blood pressure decreased [Recovered/Resolved]
  - Dizziness [Recovered/Resolved]
  - Drug interaction [Recovered/Resolved]
  - Fracture [Recovered/Resolved]
  - Loss of consciousness [Recovered/Resolved]
  - Fall [Recovered/Resolved]
  - Sensory loss [Recovered/Resolved]
